FAERS Safety Report 7961148-8 (Version None)
Quarter: 2011Q4

REPORT INFORMATION
  Report Type: 
  Country: None (occurrence: None)
  Receive Date: 20111207
  Receipt Date: 20111203
  Transmission Date: 20120403
  Serious: Yes (Other)
  Sender: FDA-Public Use
  Company Number: FR-PFIZER INC-2011295661

PATIENT
  Sex: Male

DRUGS (1)
  1. VARENICLINE TARTRATE [Suspect]
     Dosage: UNK

REACTIONS (7)
  - THIRST [None]
  - DIPLEGIA [None]
  - MOVEMENT DISORDER [None]
  - PELVIC PAIN [None]
  - DIZZINESS [None]
  - NAUSEA [None]
  - PARAESTHESIA [None]
